FAERS Safety Report 7950754-2 (Version None)
Quarter: 2011Q4

REPORT INFORMATION
  Report Type: 
  Country: None (occurrence: None)
  Receive Date: 20111201
  Receipt Date: 20111118
  Transmission Date: 20120403
  Serious: Yes (Life-Threatening)
  Sender: FDA-Public Use
  Company Number: CA-BAYER-2011-111567

PATIENT
  Age: 37 Year
  Sex: Female
  Weight: 92 kg

DRUGS (1)
  1. YASMIN [Suspect]
     Dosage: 1 DF, QD
     Route: 048

REACTIONS (4)
  - DYSPNOEA [None]
  - BURNING SENSATION [None]
  - CHEST PAIN [None]
  - PAIN IN EXTREMITY [None]
